FAERS Safety Report 7074624 (Version 2)
Quarter: 2014Q3

REPORT INFORMATION
  Report Type: Spontaneous
  Country: US (occurrence: None)
  Receive Date: 20090724
  Receipt Date: 20140926
  Transmission Date: 20150326
  Serious: Yes (Other)
  Sender: FDA-Public Use
  Company Number: 2009S1005554

PATIENT
  Age: 34 Year
  Sex: Male

DRUGS (2)
  1. PHOSPHO-SODA [Suspect]
     Active Substance: SODIUM PHOSPHATE, DIBASIC\SODIUM PHOSPHATE, MONOBASIC
     Indication: COLONOSCOPY
     Route: 048
     Dates: start: 20050619, end: 20050619
  2. LISINOPRIL (LISINOPRIL) [Concomitant]
     Active Substance: LISINOPRIL
     Route: 048
     Dates: start: 20050619, end: 20050619

REACTIONS (9)
  - Anxiety [None]
  - Depression [None]
  - Renal failure [None]
  - Nausea [None]
  - Dysphagia [None]
  - Abdominal pain [None]
  - Gastrooesophageal reflux disease [None]
  - Dialysis [None]
  - Chest pain [None]
